FAERS Safety Report 4263397-1 (Version None)
Quarter: 2004Q1

REPORT INFORMATION
  Report Type: 
  Country: None (occurrence: None)
  Receive Date: 20040105
  Receipt Date: 20031224
  Transmission Date: 20041129
  Serious: Yes (Hospitalization)
  Sender: FDA-Public Use
  Company Number: US-BRISTOL-MYERS SQUIBB COMPANY-12464863

PATIENT
  Age: 74 Year
  Sex: Male
  Weight: 145 kg

DRUGS (16)
  1. CISPLATIN [Suspect]
     Indication: MESOTHELIOMA
     Route: 042
     Dates: start: 20031202, end: 20031202
  2. PEMETREXED DISODIUM [Suspect]
     Indication: MESOTHELIOMA
     Route: 042
     Dates: start: 20031202, end: 20031202
  3. LIPITOR [Concomitant]
     Indication: BLOOD CHOLESTEROL INCREASED
  4. MULTI-VITAMIN [Concomitant]
     Indication: FOLATE DEFICIENCY
  5. PERCOCET [Concomitant]
     Indication: PAIN
     Dates: start: 20031101
  6. OXYCONTIN [Concomitant]
     Indication: PAIN
     Dates: start: 20031118
  7. PHENERGAN [Concomitant]
     Indication: NAUSEA
     Dates: start: 20031204
  8. AMBIEN [Concomitant]
  9. DARVOCET-N 100 [Concomitant]
  10. SENOKOT [Concomitant]
  11. ACIPHEX [Concomitant]
  12. LACTULOSE [Concomitant]
  13. TYLENOL [Concomitant]
  14. FOLATE SODIUM [Concomitant]
  15. COLACE [Concomitant]
  16. DECADRON [Concomitant]

REACTIONS (11)
  - BLOOD POTASSIUM INCREASED [None]
  - BLOOD SODIUM DECREASED [None]
  - CONSTIPATION [None]
  - DYSPNOEA [None]
  - ELECTROLYTE IMBALANCE [None]
  - HAEMATOCRIT DECREASED [None]
  - MARKEDLY REDUCED DIETARY INTAKE [None]
  - NAUSEA [None]
  - RENAL FAILURE ACUTE [None]
  - VOMITING [None]
  - WHITE BLOOD CELL COUNT DECREASED [None]
